FAERS Safety Report 4567184-6 (Version None)
Quarter: 2005Q1

REPORT INFORMATION
  Report Type: 
  Country: None (occurrence: None)
  Receive Date: 20050201
  Receipt Date: 20050128
  Transmission Date: 20050727
  Serious: Yes (Hospitalization)
  Sender: FDA-Public Use
  Company Number: US-GLAXOSMITHKLINE-A0542858A

PATIENT
  Sex: Male

DRUGS (2)
  1. LITHIUM [Suspect]
     Indication: DRUG USE FOR UNKNOWN INDICATION
  2. LAMICTAL [Suspect]
     Indication: BIPOLAR DISORDER
     Route: 048

REACTIONS (3)
  - MANIA [None]
  - RASH [None]
  - THERAPEUTIC AGENT TOXICITY [None]
